FAERS Safety Report 7474603-4 (Version None)
Quarter: 2011Q1

REPORT INFORMATION
  Report Type: 
  Country: None (occurrence: None)
  Receive Date: 20110302
  Receipt Date: 20100726
  Transmission Date: 20110831
  Serious: Yes (Other)
  Sender: FDA-Public Use
  Company Number: 163-21880-10042289

PATIENT
  Age: 62 Year
  Sex: Male

DRUGS (15)
  1. REVLIMID [Suspect]
     Indication: MULTIPLE MYELOMA
     Dosage: 25 MG, DAILY, PO; 25 MG, QD X 21 DAYS OFF 7 DAYS, PO
     Route: 048
     Dates: start: 20091106, end: 20100507
  2. REVLIMID [Suspect]
     Indication: MULTIPLE MYELOMA
     Dosage: 25 MG, DAILY, PO; 25 MG, QD X 21 DAYS OFF 7 DAYS, PO
     Route: 048
     Dates: start: 20090601
  3. VITAMIN D [Concomitant]
  4. IMIPRAMINE [Concomitant]
  5. POTASSIUM (POTASSIUM) [Concomitant]
  6. FOLIC ACID [Concomitant]
  7. SYMBICORT (SYMBICORT TURBUHALER ^DRACO^) [Concomitant]
  8. OMEPRAZOLE [Concomitant]
  9. ALLOPURINOL [Concomitant]
  10. DEXAMETHASONE [Suspect]
     Indication: MULTIPLE MYELOMA
     Dosage: 40 MG, 1 IN 1 WK; 40 MG, EVERY OTHER WEEK
     Dates: start: 20100111, end: 20100507
  11. DEXAMETHASONE [Suspect]
     Indication: MULTIPLE MYELOMA
     Dosage: 40 MG, 1 IN 1 WK; 40 MG, EVERY OTHER WEEK
     Dates: start: 20090601, end: 20090901
  12. ATENOLOL [Concomitant]
  13. FLUTICASONE PROPIONATE [Concomitant]
  14. TRAMADOL HCL [Concomitant]
  15. ZOLDINE (OXAZOLIDINE DERIVATIVES) [Concomitant]

REACTIONS (6)
  - DISEASE PROGRESSION [None]
  - ANAEMIA [None]
  - HIDRADENITIS [None]
  - STAPHYLOCOCCAL INFECTION [None]
  - PANCYTOPENIA [None]
  - THROMBOCYTOPENIA [None]
